FAERS Safety Report 12468253 (Version 1)
Quarter: 2016Q2

REPORT INFORMATION
  Report Type: Spontaneous
  Country: DE (occurrence: DE)
  Receive Date: 20160615
  Receipt Date: 20160615
  Transmission Date: 20160815
  Serious: Yes (Death, Life-Threatening)
  Sender: FDA-Public Use
  Company Number: DE-PFIZER INC-2016298546

PATIENT
  Age: 43 Year
  Sex: Male
  Weight: 133 kg

DRUGS (8)
  1. ABILIFY [Interacting]
     Active Substance: ARIPIPRAZOLE
     Dosage: 7.5 MG, 1X/DAY
     Route: 048
  2. BENPERIDOL [Interacting]
     Active Substance: BENPERIDOL
     Dosage: 8 MG, 1X/DAY
     Route: 048
  3. GASTROZEPIN [Concomitant]
     Active Substance: PIRENZEPINE HYDROCHLORIDE
     Dosage: 25 MG, 1X/DAY
     Route: 048
  4. TAVOR EXPIDET [Suspect]
     Active Substance: LORAZEPAM
     Dosage: 1-3 MG, AS NEEDED
     Route: 048
  5. DIAZEPAM. [Interacting]
     Active Substance: DIAZEPAM
     Dosage: 8 MG, 1X/DAY
     Route: 048
  6. OLANZAPINE ARISTO [Interacting]
     Active Substance: OLANZAPINE
     Dosage: 5-10 MG, AS NEEDED
     Route: 048
  7. AKINETON [Concomitant]
     Active Substance: BIPERIDEN HYDROCHLORIDE
     Dosage: 2 MG, 1X/DAY
     Route: 048
  8. VALPROAT [Interacting]
     Active Substance: VALPROATE SODIUM
     Dosage: 1600 MG, 1X/DAY
     Route: 048

REACTIONS (2)
  - Sudden death [Fatal]
  - Drug interaction [Fatal]

NARRATIVE: CASE EVENT DATE: 20150616
